FAERS Safety Report 4597947-2 (Version None)
Quarter: 2005Q1

REPORT INFORMATION
  Report Type: 
  Country: None (occurrence: None)
  Receive Date: 20050125
  Receipt Date: 20040930
  Transmission Date: 20050727
  Serious: No
  Sender: FDA-Public Use
  Company Number: USA040978040

PATIENT
  Age: 82 Year
  Sex: Female
  Weight: 68 kg

DRUGS (3)
  1. FORTEO [Suspect]
     Indication: OSTEOPOROSIS
     Dosage: 20 UG DAY
     Dates: start: 20040801
  2. PRILOSEC (OMEPRAZOLE RATIOPHARM) [Concomitant]
  3. MAXZIDE [Concomitant]

REACTIONS (4)
  - ABDOMINAL DISTENSION [None]
  - FLATULENCE [None]
  - SWELLING [None]
  - WEIGHT INCREASED [None]
